FAERS Safety Report 10613070 (Version 1)
Quarter: 2014Q4

REPORT INFORMATION
  Report Type: Spontaneous
  Country: US (occurrence: US)
  Receive Date: 20141128
  Receipt Date: 20141128
  Transmission Date: 20150529
  Serious: Yes (Other)
  Sender: FDA-Public Use
  Company Number: US-AMGEN-USASP2014091474

PATIENT
  Age: 55 Year
  Sex: Female

DRUGS (2)
  1. ENBREL [Suspect]
     Active Substance: ETANERCEPT
     Indication: ARTHRITIS
  2. ENBREL [Suspect]
     Active Substance: ETANERCEPT
     Indication: ANKYLOSING SPONDYLITIS
     Dosage: 50 MG, QWK
     Route: 065
     Dates: start: 20131021, end: 2014

REACTIONS (15)
  - Injection site urticaria [Recovered/Resolved]
  - Inflammation [Not Recovered/Not Resolved]
  - Carpal tunnel syndrome [Unknown]
  - Muscle spasms [Unknown]
  - Hypersensitivity [Not Recovered/Not Resolved]
  - Injection site swelling [Recovered/Resolved]
  - White blood cell count abnormal [Not Recovered/Not Resolved]
  - Immunodeficiency [Unknown]
  - Mobility decreased [Not Recovered/Not Resolved]
  - Joint destruction [Not Recovered/Not Resolved]
  - Grip strength decreased [Unknown]
  - Drug effect incomplete [Not Recovered/Not Resolved]
  - Sputum discoloured [Not Recovered/Not Resolved]
  - Rhinorrhoea [Not Recovered/Not Resolved]
  - Cough [Not Recovered/Not Resolved]

NARRATIVE: CASE EVENT DATE: 20131021
